FAERS Safety Report 9375905 (Version 1)
Quarter: 2013Q2

REPORT INFORMATION
  Report Type: Other
  Country: GB (occurrence: GB)
  Receive Date: 20130628
  Receipt Date: 20130628
  Transmission Date: 20140414
  Serious: Yes (Hospitalization)
  Sender: FDA-Public Use
  Company Number: GB-WATSON-2013-11793

PATIENT
  Sex: 0

DRUGS (7)
  1. CLARITHROMYCIN (UNKNOWN) [Suspect]
     Indication: HELICOBACTER INFECTION
     Dosage: UNK, UNKNOWN
     Route: 048
     Dates: start: 20130522, end: 20130530
  2. OMEPRAZOLE (UNKNOWN) [Suspect]
     Indication: GASTROOESOPHAGEAL REFLUX DISEASE
     Dosage: UNK, UNKNOWN
     Route: 048
     Dates: start: 20130505, end: 20130530
  3. ASPIRIN [Concomitant]
     Indication: TRANSIENT ISCHAEMIC ATTACK
     Dosage: 75 MG, UNKNOWN
     Route: 065
  4. DIPYRIDAMOLE [Concomitant]
     Indication: TRANSIENT ISCHAEMIC ATTACK
     Dosage: 200 MG, UNK
     Route: 065
  5. PERINDOPRIL [Concomitant]
     Indication: HYPERTENSION
     Dosage: 4 MG, UNKNOWN
     Route: 065
  6. FELODIPINE [Concomitant]
     Indication: HYPERTENSION
     Dosage: 5 MG, UNKNOWN
     Route: 065
  7. SIMVASTATIN +PHARMA [Concomitant]
     Indication: TRANSIENT ISCHAEMIC ATTACK
     Dosage: 40 MG, UNKNOWN
     Route: 065

REACTIONS (4)
  - Aphasia [Recovered/Resolved]
  - Confusional state [Recovered/Resolved]
  - Dysphagia [Recovered/Resolved]
  - Hypertonia [Recovered/Resolved]
